FAERS Safety Report 8854649 (Version 2)
Quarter: 2012Q4

REPORT INFORMATION
  Report Type: 
  Country: US (occurrence: US)
  Receive Date: 20121023
  Receipt Date: 20121210
  Transmission Date: 20130627
  Serious: Yes (Other)
  Sender: FDA-Public Use
  Company Number: US-UCBSA-069047

PATIENT
  Sex: Male
  Weight: 85.28 kg

DRUGS (5)
  1. CIMZIA [Suspect]
     Indication: CROHN^S DISEASE
     Route: 058
     Dates: start: 20110524
  2. COUMADIN [Concomitant]
     Dosage: UNKNOWN DOSE
  3. DICYCLOMINE [Concomitant]
     Dosage: UNKNOWN DOSE
  4. ZESTRIL [Concomitant]
     Dosage: UNKNOWN DOSE
  5. ZOCOR [Concomitant]
     Dosage: UNKNOWN DOSE

REACTIONS (1)
  - Suicidal ideation [Recovered/Resolved]
